FAERS Safety Report 14173502 (Version 1)
Quarter: 2017Q4

REPORT INFORMATION
  Report Type: Spontaneous
  Country: US (occurrence: US)
  Receive Date: 20171109
  Receipt Date: 20171109
  Transmission Date: 20180321
  Serious: No
  Sender: FDA-Public Use
  Company Number: None

PATIENT
  Age: 67 Year
  Sex: Male
  Weight: 78.75 kg

DRUGS (8)
  1. LOW DOSE ASPIRIN [Concomitant]
     Active Substance: ASPIRIN
  2. BASIC MULTIVITAMIN [Concomitant]
  3. SELENIUM [Concomitant]
     Active Substance: SELENIUM
  4. CURCUMIN [Concomitant]
     Active Substance: CURCUMIN
  5. QUERCITIN [Concomitant]
  6. SAW PALMETTO [Concomitant]
     Active Substance: HERBALS\SAW PALMETTO
  7. BETA SITOSTEROL [Concomitant]
  8. ROSUVASTATIN CALCIUM 5 MG [Suspect]
     Active Substance: ROSUVASTATIN CALCIUM
     Indication: LOW DENSITY LIPOPROTEIN INCREASED
     Dosage: ?          QUANTITY:90 TABLET(S);?
     Route: 048
     Dates: start: 20170620, end: 20171020

REACTIONS (3)
  - Haemorrhage [None]
  - Contusion [None]
  - Platelet count decreased [None]

NARRATIVE: CASE EVENT DATE: 20171004
